FAERS Safety Report 6334846-X (Version None)
Quarter: 2009Q3

REPORT INFORMATION
  Report Type: 
  Country: None (occurrence: None)
  Receive Date: 20090831
  Receipt Date: 20090825
  Transmission Date: 20100115
  Serious: Yes (Death, Hospitalization, Other)
  Sender: FDA-Public Use
  Company Number: PHHY2009US36528

PATIENT
  Sex: Female
  Weight: 2.041 kg

DRUGS (9)
  1. MYFORTIC [Suspect]
     Dosage: MATERNAL DOSE: 720 MG BID PO, 360 MG BID PO
     Route: 064
  2. PROGRAF [Concomitant]
     Dosage: MATERNAL DOSE: 3 MG BID PO, 3 MG BID PO, 2 MG BID PO, 3 MG BID PO
     Route: 064
  3. PREDNISONE TAB [Concomitant]
     Dosage: MATERNAL DOSE: 10 MG QD PO
     Route: 064
  4. DAPSONE [Concomitant]
     Dosage: UNK
     Route: 064
  5. CELEXA [Concomitant]
     Dosage: MATERNAL DOSE: 20 MG QD PO
     Route: 064
  6. THYROXIN [Concomitant]
     Dosage: MATERNAL DOSE: 0.5 MG QD PO
     Route: 064
  7. VALCYTE [Concomitant]
     Dosage: MATERNAL DOSE: 450 MG QD PO, 450 MG QOD PO
     Route: 064
  8. METOPROLOL [Concomitant]
     Dosage: MATERNAL DOSE: 25 MG QD PO
     Route: 064
  9. CONTRACEPTIVES NOS [Concomitant]
     Route: 064

REACTIONS (8)
  - DIAPHRAGMATIC HERNIA [None]
  - DRUG EXPOSURE DURING PREGNANCY [None]
  - EXTRACORPOREAL MEMBRANE OXYGENATION [None]
  - HAEMORRHAGE NEONATAL [None]
  - MEDIASTINAL SHIFT [None]
  - POLYHYDRAMNIOS [None]
  - PREMATURE BABY [None]
  - PULMONARY HYPOPLASIA [None]
